FAERS Safety Report 4850581-9 (Version None)
Quarter: 2005Q4

REPORT INFORMATION
  Report Type: 
  Country: None (occurrence: None)
  Receive Date: 20051208
  Receipt Date: 20051208
  Transmission Date: 20060501
  Serious: Yes (Other)
  Sender: FDA-Public Use
  Company Number: None

PATIENT
  Age: 37 Year
  Sex: Female
  Weight: 62.5964 kg

DRUGS (1)
  1. FLUOXETINE [Suspect]
     Indication: DEPRESSION
     Dosage: 1 CAPSULE  DAILY PO
     Route: 048
     Dates: start: 20051122, end: 20051206

REACTIONS (4)
  - ERYTHEMA [None]
  - RASH GENERALISED [None]
  - RED MAN SYNDROME [None]
  - SKIN EXFOLIATION [None]
